FAERS Safety Report 26130317 (Version 1)
Quarter: 2025Q4

REPORT INFORMATION
  Report Type: Spontaneous
  Country: US (occurrence: US)
  Receive Date: 20251208
  Receipt Date: 20251208
  Transmission Date: 20260118
  Serious: Yes (Death)
  Sender: MERCK SHARP & DOHME LLC
  Company Number: US-009507513-2356716

PATIENT
  Age: 78 Year
  Sex: Male

DRUGS (3)
  1. KEYTRUDA [Suspect]
     Active Substance: PEMBROLIZUMAB
     Dates: start: 20250828
  2. CARBOPLATIN [Concomitant]
     Active Substance: CARBOPLATIN
     Dosage: DOSAGE: 10 MG/ML
  3. PACLITAXEL [Concomitant]
     Active Substance: PACLITAXEL
     Dosage: DOSAGE: 6 MG/ML

REACTIONS (1)
  - Death [Fatal]

NARRATIVE: CASE EVENT DATE: 20251102
